FAERS Safety Report 14053397 (Version 1)
Quarter: 2017Q4

REPORT INFORMATION
  Report Type: Spontaneous
  Country: US (occurrence: None)
  Receive Date: 20171005
  Receipt Date: 20171005
  Transmission Date: 20180321
  Serious: Yes (Hospitalization)
  Sender: FDA-Public Use
  Company Number: None

PATIENT
  Age: 63 Year
  Sex: Male
  Weight: 54.88 kg

DRUGS (10)
  1. FUROSEMIDE. [Concomitant]
     Active Substance: FUROSEMIDE
  2. LEVOTHYROXINE [LEVOTHROID] [Concomitant]
  3. PREDNISONE. [Concomitant]
     Active Substance: PREDNISONE
  4. AMIODARONE [CORDARONE] [Concomitant]
  5. IRBESARTAN. [Concomitant]
     Active Substance: IRBESARTAN
  6. BEVACIZUMAB. [Suspect]
     Active Substance: BEVACIZUMAB
     Indication: METASTATIC MALIGNANT MELANOMA
     Dosage: 76 MG DAY1,8,15 EVERY28DAY IV
     Route: 042
     Dates: start: 20170710, end: 20170921
  7. HYDROCORTISONE [CORTEF] [Concomitant]
  8. AVASTIN [Suspect]
     Active Substance: BEVACIZUMAB
     Indication: METASTATIC MALIGNANT MELANOMA
     Dosage: 190 MG DAY1,8,15 EVERY28DAY IV
     Route: 042
     Dates: start: 20170710, end: 20170921
  9. ANDRODERM [Concomitant]
     Active Substance: TESTOSTERONE
  10. ATORVASTATIN [LIPITOR] [Concomitant]

REACTIONS (5)
  - Atrial fibrillation [None]
  - Pulmonary embolism [None]
  - Cough [None]
  - Tachycardia [None]
  - Dyspnoea [None]

NARRATIVE: CASE EVENT DATE: 20171003
